FAERS Safety Report 23575938 (Version 1)
Quarter: 2024Q1

REPORT INFORMATION
  Report Type: Spontaneous
  Country: US (occurrence: US)
  Receive Date: 20240228
  Receipt Date: 20240228
  Transmission Date: 20240410
  Serious: Yes (Hospitalization)
  Sender: FDA-Public Use
  Company Number: US-PFIZER INC-PV202400027102

PATIENT
  Age: 87 Year
  Sex: Male
  Weight: 75.5 kg

DRUGS (4)
  1. BOSULIF [Suspect]
     Active Substance: BOSUTINIB MONOHYDRATE
     Indication: Chronic myeloid leukaemia
     Dosage: 500 MG, ALTERNATE DAY
     Dates: start: 20210129, end: 20210908
  2. BOSULIF [Suspect]
     Active Substance: BOSUTINIB MONOHYDRATE
     Dosage: 400 MG, 1X/DAY
     Dates: start: 20210911, end: 202308
  3. BOSULIF [Suspect]
     Active Substance: BOSUTINIB MONOHYDRATE
     Dosage: 500 MG, DAILY
     Route: 048
  4. NORVASC [Concomitant]
     Active Substance: AMLODIPINE BESYLATE
     Dosage: 2.5 MG, DAILY
     Route: 048

REACTIONS (6)
  - General physical health deterioration [Unknown]
  - Cardiovascular disorder [Unknown]
  - Pleural effusion [Unknown]
  - Asthenia [Unknown]
  - Gastrointestinal disorder [Unknown]
  - Off label use [Unknown]
